FAERS Safety Report 5046524-8 (Version None)
Quarter: 2006Q3

REPORT INFORMATION
  Report Type: 
  Country: None (occurrence: None)
  Receive Date: 20060710
  Receipt Date: 20051201
  Transmission Date: 20061208
  Serious: Yes (Other)
  Sender: FDA-Public Use
  Company Number: PHEH2005US13085

PATIENT
  Sex: Male

DRUGS (5)
  1. TAXOTERE [Concomitant]
     Indication: PROSTATE CANCER
     Dosage: 70MG/M2
     Dates: start: 20040712, end: 20050119
  2. PREDNISONE TAB [Concomitant]
     Indication: PROSTATE CANCER
     Dosage: 5MG BID
     Dates: start: 20040712, end: 20050119
  3. PREDNISONE TAB [Concomitant]
     Dosage: 5MG BID
     Dates: start: 20050418, end: 20050829
  4. MITOXANTRONE [Suspect]
     Indication: PROSTATE CANCER
     Dosage: 12MG/M2
     Dates: start: 20050418, end: 20050829
  5. ZOMETA [Suspect]
     Indication: PROSTATE CANCER
     Dosage: 4MG Q3-4WK
     Dates: start: 20040607, end: 20050808

REACTIONS (4)
  - BONE DISORDER [None]
  - OSTEONECROSIS [None]
  - TOOTH EXTRACTION [None]
  - TOOTHACHE [None]
